FAERS Safety Report 5020103-0 (Version None)
Quarter: 2006Q2

REPORT INFORMATION
  Report Type: 
  Country: None (occurrence: None)
  Receive Date: 20060607
  Receipt Date: 20060526
  Transmission Date: 20061013
  Serious: Yes (Hospitalization)
  Sender: FDA-Public Use
  Company Number: BE-ROCHE-449383

PATIENT
  Age: 38 Year
  Sex: Female

DRUGS (9)
  1. SAQUINAVIR [Suspect]
     Indication: HIV INFECTION
     Route: 065
     Dates: start: 19970615
  2. NELFINAVIR [Suspect]
     Indication: HIV INFECTION
     Route: 065
     Dates: start: 19970615
  3. RITONAVIR [Suspect]
     Indication: HIV INFECTION
     Route: 065
     Dates: start: 19970615
  4. INDINAVIR [Suspect]
     Indication: HIV INFECTION
     Route: 065
     Dates: start: 19970615
  5. AMPRENAVIR [Suspect]
     Indication: HIV INFECTION
     Route: 065
     Dates: start: 19970615
  6. ABACAVIR [Suspect]
     Indication: HIV INFECTION
     Route: 065
  7. STAVUDINE [Suspect]
     Indication: HIV INFECTION
     Route: 065
  8. LOPINAVIR [Suspect]
     Indication: HIV INFECTION
     Route: 065
  9. CABERGOLINE [Concomitant]
     Indication: PROLACTINOMA
     Dates: start: 19971015

REACTIONS (14)
  - ASCITES [None]
  - BIOPSY LIVER ABNORMAL [None]
  - COAGULATION FACTOR VII LEVEL INCREASED [None]
  - COAGULATION FACTOR VIII LEVEL INCREASED [None]
  - HEPATOSPLENOMEGALY [None]
  - HYPERHOMOCYSTEINAEMIA [None]
  - HYPOCHROMIC ANAEMIA [None]
  - HYPOTENSION [None]
  - INFLAMMATION [None]
  - LIPODYSTROPHY ACQUIRED [None]
  - OESOPHAGEAL VARICES HAEMORRHAGE [None]
  - PORTAL VEIN THROMBOSIS [None]
  - PROTEIN S DEFICIENCY [None]
  - VON WILLEBRAND'S FACTOR MULTIMERS ABNORMAL [None]
